FAERS Safety Report 7970988-0 (Version None)
Quarter: 2011Q4

REPORT INFORMATION
  Report Type: 
  Country: None (occurrence: None)
  Receive Date: 20111212
  Receipt Date: 20110428
  Transmission Date: 20120403
  Serious: No
  Sender: FDA-Public Use
  Company Number: US-COVIDIEN/TYCO HEALTHCARE/MALLINCKRODT-T201100876

PATIENT
  Sex: Male

DRUGS (2)
  1. OPTIMARK [Suspect]
     Indication: NUCLEAR MAGNETIC RESONANCE IMAGING BRAIN
     Dosage: 20 ML, SINGLE
     Route: 042
     Dates: start: 20110331, end: 20110331
  2. XANAX [Concomitant]
     Indication: PREMEDICATION
     Dosage: 0.5 MG, UNK
     Route: 048
     Dates: start: 20110331, end: 20110331

REACTIONS (4)
  - URTICARIA [None]
  - SNEEZING [None]
  - CHEST PAIN [None]
  - EYE SWELLING [None]
